FAERS Safety Report 20725003 (Version 1)
Quarter: 2022Q2

REPORT INFORMATION
  Report Type: Spontaneous
  Country: US (occurrence: US)
  Receive Date: 20220419
  Receipt Date: 20220419
  Transmission Date: 20220721
  Serious: No
  Sender: FDA-Public Use
  Company Number: US-GILEAD-2022-0578256

PATIENT
  Sex: Female

DRUGS (3)
  1. SOFOSBUVIR\VELPATASVIR [Suspect]
     Active Substance: SOFOSBUVIR\VELPATASVIR
     Indication: Chronic hepatitis C
     Dosage: 1 DOSAGE FORM, QD
     Route: 048
  2. BACLOFEN [Concomitant]
     Active Substance: BACLOFEN
  3. LORATADINE [Concomitant]
     Active Substance: LORATADINE

REACTIONS (2)
  - Fatigue [Unknown]
  - Headache [Unknown]
